FAERS Safety Report 8220693-0 (Version None)
Quarter: 2012Q1

REPORT INFORMATION
  Report Type: 
  Country: None (occurrence: None)
  Receive Date: 20120320
  Receipt Date: 20120307
  Transmission Date: 20120608
  Serious: Yes (Other)
  Sender: FDA-Public Use
  Company Number: FR-COVIDIEN/TYCO HEALTHCARE/MALLINCKRODT-T201201074

PATIENT
  Sex: Female

DRUGS (2)
  1. LUTENYL [Concomitant]
     Indication: PRODUCT USED FOR UNKNOWN INDICATION
     Dosage: UNK
  2. OPTIJECT [Suspect]
     Indication: SCAN
     Dosage: UNK UNK, SINGLE
     Route: 042
     Dates: start: 20120124, end: 20120124

REACTIONS (1)
  - ANAPHYLACTOID REACTION [None]
